FAERS Safety Report 7655832-3 (Version None)
Quarter: 2011Q3

REPORT INFORMATION
  Report Type: 
  Country: None (occurrence: None)
  Receive Date: 20110804
  Receipt Date: 20110801
  Transmission Date: 20111222
  Serious: Yes (Death)
  Sender: FDA-Public Use
  Company Number: CN-PFIZER INC-2011168948

PATIENT
  Age: 64 Year
  Sex: Male

DRUGS (6)
  1. COENZYME A [Concomitant]
     Dosage: 100 IU, 1X/DAY
     Dates: start: 20040501
  2. CEFOPERAZONE SODIUM AND SULBACTAM SODIUM [Suspect]
     Indication: CORONARY ARTERY DISEASE
  3. ASCORBIC ACID [Concomitant]
     Dosage: 2 G, 1X/DAY
     Dates: start: 20040501
  4. ADENOSINE TRIPHOSPHATE [Concomitant]
     Dosage: 40 MG, 1X/DAY
     Dates: start: 20040501
  5. CEFOPERAZONE SODIUM AND SULBACTAM SODIUM [Suspect]
     Indication: UPPER RESPIRATORY TRACT INFECTION
     Dosage: 2 G, 2X/DAY
     Route: 041
     Dates: start: 20040522, end: 20040522
  6. CEFOTAXIME SODIUM [Concomitant]
     Indication: UPPER RESPIRATORY TRACT INFECTION
     Dosage: 2 G, 1X/DAY
     Dates: start: 20040501, end: 20040501

REACTIONS (2)
  - RESPIRATORY FAILURE [None]
  - ANAPHYLACTIC SHOCK [None]
